FAERS Safety Report 17791900 (Version 7)
Quarter: 2022Q1

REPORT INFORMATION
  Report Type: Spontaneous
  Country: US (occurrence: US)
  Receive Date: 20200515
  Receipt Date: 20220113
  Transmission Date: 20220423
  Serious: No
  Sender: FDA-Public Use
  Company Number: US-PFIZER INC-2020170320

PATIENT
  Age: 27 Year
  Sex: Female

DRUGS (5)
  1. LYRICA [Suspect]
     Active Substance: PREGABALIN
     Dosage: 100 MG, 3X/DAY (2 CAPS TID (THREE TIMES A DAY))
     Route: 048
  2. LYRICA [Suspect]
     Active Substance: PREGABALIN
     Dosage: 450 MG, DAILY (2 CAPSULES TID AND 2-3 CAPSULE AT BEDTIME, TOTAL 450MG DAILY)
     Route: 048
  3. LYRICA [Suspect]
     Active Substance: PREGABALIN
     Dosage: 100 MG, 3X/DAY (TAKE 2 CAPSULES TID)
     Route: 048
  4. LYRICA [Suspect]
     Active Substance: PREGABALIN
     Dosage: 150 MG, 1X/DAY (3 CAPS AT BEDTIME)
     Route: 048
  5. LYRICA [Suspect]
     Active Substance: PREGABALIN
     Dosage: 450 MG, DAILY (2 CAPSULES TID AND 3 CAPSULES AT BEDTIME, TOTAL 450MG DAILY)
     Route: 048

REACTIONS (6)
  - Malaise [Unknown]
  - Pain [Unknown]
  - Lethargy [Unknown]
  - Infection [Unknown]
  - Illness [Unknown]
  - Joint injury [Unknown]

NARRATIVE: CASE EVENT DATE: 20200514
